FAERS Safety Report 23962408 (Version 1)
Quarter: 2024Q2

REPORT INFORMATION
  Report Type: Report from Study
  Country: CA (occurrence: CA)
  Receive Date: 20240611
  Receipt Date: 20240611
  Transmission Date: 20240715
  Serious: Yes (Other)
  Sender: FDA-Public Use
  Company Number: CA-BAYER-2024A081973

PATIENT
  Age: 42 Year
  Sex: Female

DRUGS (18)
  1. CIPROFLOXACIN [Suspect]
     Active Substance: CIPROFLOXACIN
     Indication: Urinary tract infection
     Dosage: 500 MG
     Route: 065
  2. VENLAFAXINE [Suspect]
     Active Substance: VENLAFAXINE HYDROCHLORIDE
     Indication: Product used for unknown indication
     Dosage: 225 MG
     Route: 048
  3. COSENTYX [Suspect]
     Active Substance: SECUKINUMAB
     Indication: Product used for unknown indication
     Route: 065
  4. QUETIAPINE FUMARATE [Suspect]
     Active Substance: QUETIAPINE FUMARATE
     Indication: Product used for unknown indication
     Dosage: 25 MG, QD
     Route: 048
  5. HYDROCORTISONE [Suspect]
     Active Substance: HYDROCORTISONE\HYDROCORTISONE ACETATE
     Indication: Product used for unknown indication
     Route: 065
  6. CERTOLIZUMAB PEGOL [Concomitant]
     Active Substance: CERTOLIZUMAB PEGOL
     Indication: Product used for unknown indication
     Dosage: UNK
     Route: 065
  7. METHOTREXATE SODIUM [Concomitant]
     Active Substance: METHOTREXATE SODIUM
     Route: 065
  8. SULFASALAZINE [Concomitant]
     Active Substance: SULFASALAZINE
     Indication: Product used for unknown indication
     Dosage: UNK
     Route: 065
  9. PLAQUENIL [Concomitant]
     Active Substance: HYDROXYCHLOROQUINE SULFATE
     Indication: Product used for unknown indication
     Route: 065
  10. HYDROXYCHLOROQUINE AN [Concomitant]
     Indication: Product used for unknown indication
     Route: 065
  11. CIMZIA [Concomitant]
     Active Substance: CERTOLIZUMAB PEGOL
     Dosage: UNK
     Route: 042
  12. CANNABIS SATIVA FLOWERING TOP [Concomitant]
     Active Substance: CANNABIS SATIVA FLOWERING TOP
     Indication: Pain
  13. CIPROFLOXACIN LACTATE [Concomitant]
     Active Substance: CIPROFLOXACIN LACTATE
     Indication: Urinary tract infection
     Dosage: 500 MG
     Route: 048
  14. SEMAGLUTIDE [Concomitant]
     Active Substance: SEMAGLUTIDE
     Indication: Weight increased
     Route: 058
  15. Statex [Concomitant]
     Indication: Product used for unknown indication
     Route: 048
  16. DESOXIMETASONE [Concomitant]
     Active Substance: DESOXIMETASONE
     Indication: Urinary tract infection
     Dosage: 1 DF, QD
     Route: 065
  17. DILAUDID [Concomitant]
     Active Substance: HYDROMORPHONE HYDROCHLORIDE
     Indication: Product used for unknown indication
     Dosage: 2 MG, BID
     Route: 048
  18. AMITRIPTYLINE [Concomitant]
     Active Substance: AMITRIPTYLINE
     Indication: Product used for unknown indication
     Dosage: 2 DF, QD
     Route: 048

REACTIONS (20)
  - Gait disturbance [Unknown]
  - Hyperhidrosis [Unknown]
  - Bronchitis [Unknown]
  - Product dose omission issue [Unknown]
  - Vomiting [Unknown]
  - Muscular weakness [Unknown]
  - Productive cough [Unknown]
  - Migraine [Unknown]
  - Rash macular [Unknown]
  - Pollakiuria [Unknown]
  - Weight decreased [Unknown]
  - Abdominal pain lower [Unknown]
  - Nausea [Unknown]
  - Hypoaesthesia [Unknown]
  - Balance disorder [Unknown]
  - Back pain [Unknown]
  - Dyspnoea [Unknown]
  - Arthralgia [Unknown]
  - Faeces discoloured [Unknown]
  - Drug ineffective [Unknown]
